FAERS Safety Report 8770129 (Version 1)
Quarter: 2012Q4

REPORT INFORMATION
  Report Type: 
  Country: US (occurrence: US)
  Receive Date: 20120904
  Receipt Date: 20120904
  Transmission Date: 20130627
  Serious: Yes (Other)
  Sender: FDA-Public Use
  Company Number: US-AMGEN-USASP2012055490

PATIENT

DRUGS (2)
  1. ENBREL [Suspect]
     Indication: RHEUMATOID ARTHRITIS
     Dosage: UNK
     Dates: start: 20090415, end: 20090815
  2. HUMIRA [Concomitant]
     Dosage: UNK
     Dates: start: 200908

REACTIONS (2)
  - Neoplasm malignant [Unknown]
  - Appendicectomy [Unknown]
